FAERS Safety Report 9138045 (Version 1)
Quarter: 2013Q1

REPORT INFORMATION
  Report Type: Spontaneous
  Country: US (occurrence: US)
  Receive Date: 20130304
  Receipt Date: 20130304
  Transmission Date: 20140127
  Serious: No
  Sender: FDA-Public Use
  Company Number: US-TEVA-357499USA

PATIENT
  Sex: Male

DRUGS (1)
  1. TREANDA [Suspect]
     Dosage: RECEIVED 3/4 OF 198MG DOSE
     Route: 042

REACTIONS (2)
  - Extravasation [Not Recovered/Not Resolved]
  - Swelling [Not Recovered/Not Resolved]
